FAERS Safety Report 7295353-3 (Version None)
Quarter: 2011Q1

REPORT INFORMATION
  Report Type: 
  Country: None (occurrence: None)
  Receive Date: 20110216
  Receipt Date: 20110214
  Transmission Date: 20110831
  Serious: Yes (Death, Hospitalization, Other)
  Sender: FDA-Public Use
  Company Number: BR-PFIZER INC-2011032141

PATIENT
  Age: 60 Year
  Sex: Female

DRUGS (5)
  1. GARDENAL ^AVENTIS^ [Concomitant]
     Dosage: 100 MG, UNK
  2. ALDACTONE [Suspect]
     Indication: ASCITES
     Dosage: 100 MG, UNK
     Route: 048
     Dates: start: 20060101
  3. DIMETICONE [Concomitant]
     Dosage: 125 MG, UNK
  4. LASIX [Concomitant]
     Dosage: 40 MG, UNK
  5. LEPONEX ^NOVARTIS^ [Concomitant]
     Dosage: 100 MG, UNK
     Dates: start: 19960101

REACTIONS (8)
  - PULMONARY OEDEMA [None]
  - PELVIC FRACTURE [None]
  - PLEURAL EFFUSION [None]
  - PAIN [None]
  - CONGESTIVE CARDIOMYOPATHY [None]
  - FEMUR FRACTURE [None]
  - FALL [None]
  - METASTASES TO LIVER [None]
